FAERS Safety Report 21208202 (Version 1)
Quarter: 2022Q3

REPORT INFORMATION
  Report Type: Spontaneous
  Country: US (occurrence: US)
  Receive Date: 20220812
  Receipt Date: 20220812
  Transmission Date: 20221027
  Serious: Yes (Other)
  Sender: FDA-Public Use
  Company Number: US-SA-SAC20220809001809

PATIENT
  Age: 34 Year
  Sex: Male

DRUGS (1)
  1. ZANTAC [Suspect]
     Active Substance: RANITIDINE HYDROCHLORIDE
     Indication: Dyspepsia
     Dosage: 150 MG (FREQUENCY-OTHER)
     Dates: start: 201301, end: 201901

REACTIONS (2)
  - Renal cancer stage II [Recovering/Resolving]
  - Testis cancer [Recovering/Resolving]

NARRATIVE: CASE EVENT DATE: 20180301
